FAERS Safety Report 7037382-0 (Version None)
Quarter: 2010Q4

REPORT INFORMATION
  Report Type: 
  Country: None (occurrence: None)
  Receive Date: 20101011
  Receipt Date: 20100929
  Transmission Date: 20110411
  Serious: Yes (Other)
  Sender: FDA-Public Use
  Company Number: US-PFIZER INC-2010124705

PATIENT
  Sex: Female
  Weight: 81.179 kg

DRUGS (7)
  1. NEURONTIN [Suspect]
     Indication: MIGRAINE
     Dosage: UNK
     Dates: start: 20020101
  2. PREDNISONE [Suspect]
     Indication: SYSTEMIC LUPUS ERYTHEMATOSUS
     Dosage: UNK
     Dates: start: 20070101
  3. TOPIRAMATE [Concomitant]
     Dosage: UNK
  4. FLUOXETINE [Concomitant]
     Indication: FIBROMYALGIA
     Dosage: UNK
  5. HYDROCHLOROTHIAZIDE [Concomitant]
     Indication: HYPERTENSION
     Dosage: UNK
  6. CELEBREX [Concomitant]
     Dosage: UNK
  7. LISINOPRIL [Concomitant]
     Indication: HYPERTENSION
     Dosage: UNK

REACTIONS (4)
  - DYSKINESIA [None]
  - FIBROMYALGIA [None]
  - MACROCYTOSIS [None]
  - WEIGHT INCREASED [None]
